FAERS Safety Report 10051658 (Version 2)
Quarter: 2014Q2

REPORT INFORMATION
  Report Type: Report from Study
  Country: US (occurrence: US)
  Receive Date: 20140401
  Receipt Date: 20140410
  Transmission Date: 20141212
  Serious: Yes (Other)
  Sender: FDA-Public Use
  Company Number: US-ABBVIE-14P-163-1218099-00

PATIENT
  Sex: Female
  Weight: 113.5 kg

DRUGS (7)
  1. DIVALPROEX SODIUM [Suspect]
     Indication: EPILEPSY
  2. ASPIRIN [Concomitant]
     Indication: PAIN
  3. FUROSEMIDE [Concomitant]
     Indication: DIURETIC THERAPY
  4. LORAZEPAM [Concomitant]
     Indication: ANXIETY
  5. OXYBUTYNIN [Concomitant]
     Indication: HYPERTONIC BLADDER
  6. CALCIUM [Concomitant]
     Indication: VITAMIN SUPPLEMENTATION
  7. KLOR CON [Concomitant]
     Indication: MINERAL SUPPLEMENTATION

REACTIONS (1)
  - Convulsion [Recovered/Resolved]
